FAERS Safety Report 16589253 (Version 1)
Quarter: 2019Q3

REPORT INFORMATION
  Report Type: Spontaneous
  Country: DE (occurrence: DE)
  Receive Date: 20190718
  Receipt Date: 20190718
  Transmission Date: 20191004
  Serious: Yes (Life-Threatening, Hospitalization)
  Sender: FDA-Public Use
  Company Number: DE-TEVA-2019-DE-1077969

PATIENT
  Age: 55 Year
  Sex: Male

DRUGS (10)
  1. ADVAGRAF [Suspect]
     Active Substance: TACROLIMUS
     Dosage: 4 MG, 1-0-0-0
  2. PREDNISOLONE. [Suspect]
     Active Substance: PREDNISOLONE
     Dosage: 5 MG, 1-0-0-0
  3. CELLCEPT [Suspect]
     Active Substance: MYCOPHENOLATE MOFETIL\MYCOPHENOLATE MOFETIL HYDROCHLORIDE
     Dosage: 500 MG, 2-0-2-0
  4. CARVEDILOL. [Concomitant]
     Active Substance: CARVEDILOL
     Dosage: 25 MG, 1-0-0-0
  5. FLUVASTATIN [Concomitant]
     Active Substance: FLUVASTATIN SODIUM
     Dosage: 80 MG, 0-0-1-0
  6. ASS 100 [Concomitant]
     Active Substance: ASPIRIN
     Dosage: 100 MG, 1-0-0-0
  7. DEKRISTOL 20000I.E. [Concomitant]
     Dosage: 20000 IU, EVERY 2 WEEKS
  8. SULTAMICILLIN [Concomitant]
     Active Substance: SULTAMICILLIN
     Dosage: 375 MG, BEFORE INTERVENTIONS 0-0-1; 1-0-1; THEN DEPOSE AGAIN
  9. CANDESARTAN. [Concomitant]
     Active Substance: CANDESARTAN
     Dosage: 16 MG, 1-0-1-0
  10. PANTOPRAZOL [Concomitant]
     Active Substance: PANTOPRAZOLE SODIUM
     Dosage: 20 MG, REQUIREMENT 1-0-0-0

REACTIONS (1)
  - Dyspnoea [Unknown]

NARRATIVE: CASE EVENT DATE: 20180110
